FAERS Safety Report 23344532 (Version 1)
Quarter: 2023Q4

REPORT INFORMATION
  Report Type: Spontaneous
  Country: NL (occurrence: NL)
  Receive Date: 20231228
  Receipt Date: 20231228
  Transmission Date: 20240109
  Serious: Yes (Other)
  Sender: FDA-Public Use
  Company Number: None

PATIENT
  Age: 55 Month
  Sex: Female
  Weight: 164 kg

DRUGS (6)
  1. AMINO ACIDS\DEXTROSE\ELECTROLYTES NOS\SOYBEAN OIL [Suspect]
     Active Substance: AMINO ACIDS\DEXTROSE\ELECTROLYTES NOS\SOYBEAN OIL
     Indication: Parenteral nutrition
     Dosage: 1 DOSAGE FORM AT UNSPECIFIED FREQUENCY, DOSAGE TEXT: N/A
     Route: 065
     Dates: start: 20231207
  2. DROPERIDOL [Suspect]
     Active Substance: DROPERIDOL
     Indication: Nausea
     Dosage: 1 DOSAGE FORM, (DOSAGE TEXT: 0.01 MG/KG/DOSE = 0.16 MILLIGRAM)
     Route: 065
     Dates: start: 20231209, end: 20231210
  3. ESOMEPRAZOLE [Suspect]
     Active Substance: ESOMEPRAZOLE
     Indication: Prophylaxis
     Dosage: 10 MG (MILLIGRAM) AT UNSPECIFIED FREQUENCY
     Route: 065
     Dates: start: 20231207
  4. DICLOFENAC SODIUM [Concomitant]
     Active Substance: DICLOFENAC\DICLOFENAC SODIUM
     Dosage: (DOSAGE TEXT: SUPPOSITORY, 12.5 MG (MILLIGRAM))
     Route: 065
  5. ROPIVACAINE [Concomitant]
     Active Substance: ROPIVACAINE
     Dosage: (DOSAGE TEXT: SOLUTION FOR INFUSION 2 MG/ML (MILLIGRAM PER MILLILITER))
     Route: 065
  6. ACETAMINOPHEN [Concomitant]
     Active Substance: ACETAMINOPHEN
     Dosage: (DOSAGE TEXT: SOLUTION FOR INFUSION 10 MG/ML (MILLIGRAM PER MILLILITER))
     Route: 065

REACTIONS (2)
  - Depressed level of consciousness [Recovered/Resolved]
  - Epilepsy [Recovered/Resolved]
